FAERS Safety Report 4546960-X (Version None)
Quarter: 2005Q1

REPORT INFORMATION
  Report Type: 
  Country: None (occurrence: None)
  Receive Date: 20050105
  Receipt Date: 20041229
  Transmission Date: 20050727
  Serious: Yes (Hospitalization)
  Sender: FDA-Public Use
  Company Number: FRWYE309429DEC04

PATIENT
  Age: 32 Year
  Sex: Female

DRUGS (2)
  1. EFFEXOR [Suspect]
     Dosage: 30 TABLETS
     Route: 048
     Dates: start: 20041228, end: 20041228
  2. AMITRIPTYLINE HCL [Suspect]
     Dosage: 1 TABLET D
     Route: 048
     Dates: start: 20041228, end: 20041228

REACTIONS (7)
  - DEPRESSED LEVEL OF CONSCIOUSNESS [None]
  - DRUG SCREEN POSITIVE [None]
  - ELECTROCARDIOGRAM QRS COMPLEX PROLONGED [None]
  - ELECTROCARDIOGRAM QT PROLONGED [None]
  - INTENTIONAL MISUSE [None]
  - SUICIDE ATTEMPT [None]
  - TACHYCARDIA [None]
